FAERS Safety Report 12721355 (Version 2)
Quarter: 2016Q3

REPORT INFORMATION
  Report Type: Report from Study
  Country: KR (occurrence: KR)
  Receive Date: 20160907
  Receipt Date: 20160926
  Transmission Date: 20161109
  Serious: Yes (Hospitalization, Disabling)
  Sender: FDA-Public Use
  Company Number: KR-CELGENEUS-KOR-2016083084

PATIENT
  Age: 64 Year
  Sex: Male
  Weight: 52 kg

DRUGS (10)
  1. TEICOCIN [Concomitant]
     Indication: PNEUMONIA
     Route: 065
     Dates: end: 20160807
  2. CRAVIT [Concomitant]
     Active Substance: LEVOFLOXACIN
     Indication: PNEUMONIA
     Route: 065
  3. GEMCITABINE [Suspect]
     Active Substance: GEMCITABINE\GEMCITABINE HYDROCHLORIDE
     Indication: PANCREATIC CARCINOMA METASTATIC
     Dosage: 560 MILLIGRAM
     Route: 041
     Dates: start: 20160531, end: 20160802
  4. MEGESTROL ACETATE. [Concomitant]
     Active Substance: MEGESTROL ACETATE
     Indication: PRODUCT USED FOR UNKNOWN INDICATION
     Dosage: 800 MILLIGRAM/SQ. METER
     Route: 065
     Dates: start: 20160526
  5. STOGAR [Concomitant]
     Active Substance: LAFUTIDINE
     Indication: PRODUCT USED FOR UNKNOWN INDICATION
     Route: 065
     Dates: start: 20160528
  6. JANUVIA [Concomitant]
     Active Substance: SITAGLIPTIN PHOSPHATE
     Indication: PRODUCT USED FOR UNKNOWN INDICATION
     Route: 065
     Dates: start: 20160528
  7. ABRAXANE [Suspect]
     Active Substance: PACLITAXEL
     Indication: PANCREATIC CARCINOMA METASTATIC
     Dosage: 100 MILLIGRAM/SQ. METER
     Route: 041
     Dates: start: 20160531, end: 20160802
  8. TRIDOL [Concomitant]
     Active Substance: TRAMADOL HYDROCHLORIDE
     Indication: ABDOMINAL PAIN
     Route: 065
     Dates: start: 20160602
  9. TAZOPERAN [Concomitant]
     Indication: PNEUMONIA
     Route: 065
  10. CRESTOR [Concomitant]
     Active Substance: ROSUVASTATIN CALCIUM
     Indication: PRODUCT USED FOR UNKNOWN INDICATION
     Route: 065
     Dates: start: 20160528

REACTIONS (1)
  - Guillain-Barre syndrome [Not Recovered/Not Resolved]

NARRATIVE: CASE EVENT DATE: 20160801
